FAERS Safety Report 5061919-4 (Version None)
Quarter: 2006Q3

REPORT INFORMATION
  Report Type: 
  Country: None (occurrence: None)
  Receive Date: 20060703
  Receipt Date: 20051213
  Transmission Date: 20061208
  Serious: No
  Sender: FDA-Public Use
  Company Number: 2005S1011966

PATIENT
  Age: 53 Year
  Sex: Female

DRUGS (12)
  1. CLOZAPINE [Suspect]
     Indication: SCHIZOAFFECTIVE DISORDER
     Dosage: SEE IMAGE
     Route: 048
     Dates: start: 20020425, end: 20051207
  2. CLOZAPINE [Suspect]
     Indication: SCHIZOAFFECTIVE DISORDER
     Dosage: SEE IMAGE
     Route: 048
     Dates: start: 20020425, end: 20051208
  3. CLOZAPINE [Suspect]
     Indication: SCHIZOAFFECTIVE DISORDER
     Dosage: SEE IMAGE
     Route: 048
     Dates: start: 20051209
  4. CLOZAPINE [Suspect]
     Indication: SCHIZOAFFECTIVE DISORDER
     Dosage: SEE IMAGE
     Route: 048
     Dates: start: 20051210
  5. VALPROATE SODIUM [Concomitant]
  6. BUPROPION HCL [Concomitant]
  7. ZIPRASIDONE HCL [Concomitant]
  8. FERROUS SULFATE TAB [Concomitant]
  9. DOCUSATE SODIUM [Concomitant]
  10. LORATADINE [Concomitant]
  11. FOLIC ACID [Concomitant]
  12. VITAMINS NOS [Concomitant]

REACTIONS (2)
  - GRANULOCYTOPENIA [None]
  - LEUKOPENIA [None]
